FAERS Safety Report 6137672-X (Version None)
Quarter: 2009Q1

REPORT INFORMATION
  Report Type: 
  Country: None (occurrence: None)
  Receive Date: 20090331
  Receipt Date: 20090323
  Transmission Date: 20090719
  Serious: Yes (Hospitalization)
  Sender: FDA-Public Use
  Company Number: PHHO2007HU03803

PATIENT
  Sex: Male
  Weight: 92 kg

DRUGS (1)
  1. TASIGNA [Suspect]
     Indication: CHRONIC MYELOID LEUKAEMIA
     Dosage: 800MG DAILY
     Route: 048
     Dates: start: 20060822

REACTIONS (3)
  - CATARACT [None]
  - CATARACT OPERATION [None]
  - DISEASE PROGRESSION [None]
